FAERS Safety Report 26016390 (Version 1)
Quarter: 2025Q4

REPORT INFORMATION
  Report Type: Spontaneous
  Country: TW (occurrence: TW)
  Receive Date: 20251110
  Receipt Date: 20251110
  Transmission Date: 20260118
  Serious: Yes (Death, Hospitalization, Other)
  Sender: ASTELLAS
  Company Number: TW-ASTELLAS-2025-AER-061533

PATIENT
  Age: 52 Year
  Sex: Male

DRUGS (4)
  1. VYLOY [Suspect]
     Active Substance: ZOLBETUXIMAB-CLZB
     Indication: Oesophageal adenocarcinoma
     Route: 065
     Dates: start: 20250713
  2. VYLOY [Suspect]
     Active Substance: ZOLBETUXIMAB-CLZB
     Route: 065
     Dates: start: 20250727
  3. CAPECITABINE\OXALIPLATIN [Concomitant]
     Active Substance: CAPECITABINE\OXALIPLATIN
     Indication: Product used for unknown indication
     Route: 065
     Dates: start: 20250727
  4. CAPECITABINE\OXALIPLATIN [Concomitant]
     Active Substance: CAPECITABINE\OXALIPLATIN
     Route: 065
     Dates: start: 20250713

REACTIONS (5)
  - Death [Fatal]
  - Biliary obstruction [Unknown]
  - Pyrexia [Recovered/Resolved]
  - Oxygen saturation decreased [Recovered/Resolved]
  - Off label use [Unknown]

NARRATIVE: CASE EVENT DATE: 20250713
